FAERS Safety Report 19450510 (Version 4)
Quarter: 2021Q4

REPORT INFORMATION
  Report Type: Report from Study
  Country: IT (occurrence: IT)
  Receive Date: 20210622
  Receipt Date: 20211228
  Transmission Date: 20220304
  Serious: Yes (Hospitalization)
  Sender: FDA-Public Use
  Company Number: IT-PFIZER INC-2021729877

PATIENT
  Sex: Male
  Weight: 54 kg

DRUGS (14)
  1. MEDROL [Suspect]
     Active Substance: METHYLPREDNISOLONE
     Indication: Facial pain
     Dosage: UNK
     Route: 048
     Dates: start: 20210315, end: 20210404
  2. MEDROL [Suspect]
     Active Substance: METHYLPREDNISOLONE
     Indication: Rash
  3. IDELALISIB [Suspect]
     Active Substance: IDELALISIB
     Indication: Follicular lymphoma
     Dosage: 150 MG, 2X/DAY
     Route: 048
     Dates: start: 20210219, end: 20210304
  4. IDELALISIB [Suspect]
     Active Substance: IDELALISIB
     Dosage: 150 MG, 2X/DAY
     Route: 048
     Dates: start: 20210312, end: 20210415
  5. BACTRIM [Suspect]
     Active Substance: SULFAMETHOXAZOLE\TRIMETHOPRIM
     Indication: Prophylaxis
     Dosage: UNK
     Route: 048
     Dates: start: 20210219
  6. ACYCLOVIR [Suspect]
     Active Substance: ACYCLOVIR
     Dosage: UNK
  7. COVID-19 VACCINE [Concomitant]
     Indication: COVID-19 immunisation
     Dosage: DOSE 1, SINGLE
     Dates: start: 20210405, end: 20210405
  8. ACETAMINOPHEN [Concomitant]
     Active Substance: ACETAMINOPHEN
     Dosage: UNK
     Dates: start: 20210417, end: 20210417
  9. TRAMADOL HYDROCHLORIDE [Concomitant]
     Active Substance: TRAMADOL HYDROCHLORIDE
     Dosage: UNK
     Dates: start: 20210418, end: 20210418
  10. VALACYCLOVIR HYDROCHLORIDE [Concomitant]
     Active Substance: VALACYCLOVIR HYDROCHLORIDE
     Dosage: UNK
     Dates: start: 20210219
  11. PANTOPRAZOLE [Concomitant]
     Active Substance: PANTOPRAZOLE
     Dosage: UNK
     Dates: start: 20210219
  12. AVODART [Concomitant]
     Active Substance: DUTASTERIDE
     Dosage: UNK
     Dates: start: 2017
  13. KETOPROFEN [Concomitant]
     Active Substance: KETOPROFEN
     Dosage: UNK
     Dates: start: 20210408, end: 20210421
  14. DICLOFENAC [Concomitant]
     Active Substance: DICLOFENAC
     Dosage: UNK
     Dates: start: 20210410, end: 20210421

REACTIONS (4)
  - COVID-19 [Recovering/Resolving]
  - Infection [Recovered/Resolved]
  - Facial pain [Recovered/Resolved]
  - Pyrexia [Recovered/Resolved]

NARRATIVE: CASE EVENT DATE: 20210426
